FAERS Safety Report 7896336-2 (Version None)
Quarter: 2011Q4

REPORT INFORMATION
  Report Type: 
  Country: None (occurrence: None)
  Receive Date: 20111106
  Receipt Date: 20110908
  Transmission Date: 20120403
  Serious: No
  Sender: FDA-Public Use
  Company Number: US-AMGEN-USASP2011043689

PATIENT
  Age: 59 Year
  Sex: Female

DRUGS (2)
  1. ENBREL [Suspect]
     Indication: RHEUMATOID ARTHRITIS
     Dosage: 50 MG, QWK
     Dates: start: 20110420, end: 20110823
  2. TREXALL [Concomitant]
     Dosage: 1 MG, QWK
     Dates: start: 20100501

REACTIONS (4)
  - HEPATIC ENZYME INCREASED [None]
  - ABDOMINAL PAIN [None]
  - HEPATIC ENZYME ABNORMAL [None]
  - BLISTER [None]
